FAERS Safety Report 8194102-4 (Version None)
Quarter: 2012Q1

REPORT INFORMATION
  Report Type: 
  Country: None (occurrence: None)
  Receive Date: 20120308
  Receipt Date: 20120302
  Transmission Date: 20120608
  Serious: Yes (Hospitalization, Other)
  Sender: FDA-Public Use
  Company Number: US-ELI_LILLY_AND_COMPANY-US201203001211

PATIENT
  Sex: Female

DRUGS (4)
  1. HUMALOG [Suspect]
     Indication: TYPE 2 DIABETES MELLITUS
     Dosage: 25 U, TID
  2. HUMALOG [Suspect]
     Dosage: 25 TO 30 U, OTHER
  3. LANTUS [Concomitant]
     Indication: TYPE 2 DIABETES MELLITUS
     Dosage: 50 U, QD
  4. HUMALOG [Suspect]
     Dosage: TID, PER SLIDING SCALE

REACTIONS (5)
  - BLOOD DISORDER [None]
  - BLOOD GLUCOSE INCREASED [None]
  - PLATELET COUNT DECREASED [None]
  - VISUAL ACUITY REDUCED [None]
  - STRESS [None]
